FAERS Safety Report 18607913 (Version 2)
Quarter: 2020Q4

REPORT INFORMATION
  Report Type: Report from Study
  Country: IT (occurrence: IT)
  Receive Date: 20201211
  Receipt Date: 20201230
  Transmission Date: 20210114
  Serious: Yes (Other)
  Sender: FDA-Public Use
  Company Number: IT-EXELIXIS-XL18420035743

PATIENT
  Age: 61 Year
  Sex: Male
  Weight: 66 kg

DRUGS (9)
  1. MORPHINE [Concomitant]
     Active Substance: MORPHINE
  2. BLINDED XL184 [Suspect]
     Active Substance: CABOZANTINIB
     Indication: RENAL CELL CARCINOMA
     Dosage: 40 MG, QD
     Route: 048
     Dates: start: 20201113
  3. OMEPRAZOLE. [Concomitant]
     Active Substance: OMEPRAZOLE
  4. RAMIPRIL. [Concomitant]
     Active Substance: RAMIPRIL
  5. OXYCODONE;PARACETAMOL [Concomitant]
     Active Substance: ACETAMINOPHEN\OXYCODONE HYDROCHLORIDE
  6. PLACEBO [Suspect]
     Active Substance: UNSPECIFIED INGREDIENT
     Indication: RENAL CELL CARCINOMA
     Dosage: 40 MG, QD
     Route: 048
     Dates: start: 20201113
  7. IPILIMUMAB [Suspect]
     Active Substance: IPILIMUMAB
     Indication: RENAL CELL CARCINOMA
     Dosage: 1 MG/KG, Q3WEEKS, 4 DOSES
     Route: 042
     Dates: start: 20201113
  8. NIVOLUMAB [Suspect]
     Active Substance: NIVOLUMAB
     Indication: RENAL CELL CARCINOMA
     Dosage: 1 MG/KG, Q3WEEKS, 4 DOSES
     Route: 042
     Dates: start: 20201113
  9. EZETIMIBE;SIMVASTATIN [Concomitant]
     Active Substance: EZETIMIBE\SIMVASTATIN

REACTIONS (1)
  - Transaminases increased [Recovered/Resolved]

NARRATIVE: CASE EVENT DATE: 20201204
